FAERS Safety Report 24422448 (Version 2)
Quarter: 2024Q4

REPORT INFORMATION
  Report Type: Spontaneous
  Country: JP (occurrence: JP)
  Receive Date: 20241010
  Receipt Date: 20241119
  Transmission Date: 20250114
  Serious: Yes (Death, Life-Threatening, Hospitalization, Other)
  Sender: BRISTOL-MYERS SQUIBB COMPANY
  Company Number: JP-TAIHO-2024-009414

PATIENT
  Age: 9 Decade
  Sex: Male
  Weight: 50.2 kg

DRUGS (3)
  1. ABRAXANE [Suspect]
     Active Substance: PACLITAXEL
     Indication: Non-small cell lung cancer
     Dosage: CYCLE 1?DAILY DOSE: 100 MILLIGRAM(S)/SQ. METER
     Route: 041
  2. ABRAXANE [Suspect]
     Active Substance: PACLITAXEL
     Dosage: CYCLE 1?DAILY DOSE: 100 MILLIGRAM(S)/SQ. METER
     Route: 041
     Dates: start: 20230830, end: 20230905
  3. DEXAMETHASONE SODIUM PHOSPHATE [Concomitant]
     Active Substance: DEXAMETHASONE SODIUM PHOSPHATE
     Indication: Prophylaxis of nausea and vomiting
     Dosage: 2 DOSING DAYS DAILY DOSE: 6.6 MILLIGRAM(S)
     Route: 041
     Dates: start: 20230830, end: 20230905

REACTIONS (4)
  - Sepsis [Fatal]
  - Febrile neutropenia [Fatal]
  - Off label use [Unknown]
  - Pneumonia [Fatal]

NARRATIVE: CASE EVENT DATE: 20230908
